FAERS Safety Report 7371001-9 (Version None)
Quarter: 2011Q1

REPORT INFORMATION
  Report Type: 
  Country: None (occurrence: None)
  Receive Date: 20110324
  Receipt Date: 20110318
  Transmission Date: 20110831
  Serious: Yes (Hospitalization)
  Sender: FDA-Public Use
  Company Number: ES-SHIRE-SPV1-2011-00447

PATIENT
  Age: 73 Year
  Sex: Male

DRUGS (1)
  1. XAGRID [Suspect]
     Indication: ESSENTIAL THROMBOCYTHAEMIA
     Dosage: 1 MG, 2X/DAY:BID (BREAKFAST AND DINNER)
     Dates: start: 20110207

REACTIONS (2)
  - ANAEMIA [None]
  - RESPIRATORY DISTRESS [None]
